FAERS Safety Report 20668854 (Version 1)
Quarter: 2022Q2

REPORT INFORMATION
  Report Type: Spontaneous
  Country: GB (occurrence: GB)
  Receive Date: 20220404
  Receipt Date: 20220404
  Transmission Date: 20220721
  Serious: Yes (Hospitalization)
  Sender: FDA-Public Use
  Company Number: GB-VERTEX PHARMACEUTICALS-2022-005099

PATIENT
  Sex: Male

DRUGS (6)
  1. ELEXACAFTOR\IVACAFTOR\TEZACAFTOR [Suspect]
     Active Substance: ELEXACAFTOR\IVACAFTOR\TEZACAFTOR
     Indication: Cystic fibrosis
     Dosage: TWO TABLETS (75MG IVA/50MG TEZA/100MG ELEXA) IN MORNING
     Route: 048
     Dates: start: 2019
  2. TRION [METRONIDAZOLE] [Concomitant]
     Dosage: 10000
  3. ZENTRO [CEFOTAXIME SODIUM] [Concomitant]
  4. TOBRAMYCIN [Concomitant]
     Active Substance: TOBRAMYCIN
  5. ALBUTEROL [Concomitant]
     Active Substance: ALBUTEROL
  6. INSULIN NOS [Concomitant]
     Active Substance: INSULIN NOS

REACTIONS (2)
  - Pulmonary function test decreased [Unknown]
  - COVID-19 [Recovered/Resolved]

NARRATIVE: CASE EVENT DATE: 20220315
